FAERS Safety Report 26025506 (Version 2)
Quarter: 2025Q4

REPORT INFORMATION
  Report Type: Spontaneous
  Country: JP (occurrence: JP)
  Receive Date: 20251111
  Receipt Date: 20251113
  Transmission Date: 20260118
  Serious: Yes (Life-Threatening, Hospitalization)
  Sender: ASTELLAS
  Company Number: JP-ASTELLAS-2025-AER-062118

PATIENT
  Age: 81 Year
  Sex: Male

DRUGS (5)
  1. PADCEV [Suspect]
     Active Substance: ENFORTUMAB VEDOTIN-EJFV
     Indication: Metastatic carcinoma of the bladder
     Dosage: THE TREATMENT CYCLE CONSISTS OF THREE WEEKS, WITH PEMBROLIZUMAB ADMINISTERED IN COMBINATION ON DAY 1
     Route: 042
     Dates: start: 20250808, end: 20250815
  2. PADCEV [Suspect]
     Active Substance: ENFORTUMAB VEDOTIN-EJFV
     Dosage: THE TREATMENT CYCLE CONSISTS OF THREE WEEKS, WITH PEMBROLIZUMAB ADMINISTERED IN COMBINATION ON DAY 1
     Route: 042
     Dates: start: 20250922, end: 20250922
  3. PADCEV [Suspect]
     Active Substance: ENFORTUMAB VEDOTIN-EJFV
     Dosage: THE TREATMENT CYCLE CONSISTS OF THREE WEEKS, WITH PEMBROLIZUMAB ADMINISTERED IN COMBINATION ON DAY 1
     Route: 042
     Dates: start: 20251020, end: 20251020
  4. KEYTRUDA [Suspect]
     Active Substance: PEMBROLIZUMAB
     Indication: Metastatic carcinoma of the bladder
     Route: 042
     Dates: start: 20250808, end: 20250808
  5. KEYTRUDA [Suspect]
     Active Substance: PEMBROLIZUMAB
     Route: 042
     Dates: start: 20250922, end: 20251020

REACTIONS (6)
  - Platelet count decreased [Not Recovered/Not Resolved]
  - Cytokine release syndrome [Not Recovered/Not Resolved]
  - Pyrexia [Unknown]
  - Interstitial lung disease [Not Recovered/Not Resolved]
  - Hyperglycaemia [Recovered/Resolved]
  - Weight decreased [Recovering/Resolving]

NARRATIVE: CASE EVENT DATE: 20250815
